FAERS Safety Report 5494165-0 (Version None)
Quarter: 2007Q4

REPORT INFORMATION
  Report Type: 
  Country: None (occurrence: None)
  Receive Date: 20071023
  Receipt Date: 20071023
  Transmission Date: 20080405
  Serious: Yes (Hospitalization)
  Sender: FDA-Public Use
  Company Number: None

PATIENT
  Age: 19 Year
  Sex: Female
  Weight: 72.5755 kg

DRUGS (1)
  1. LEVAQUIN [Suspect]
     Indication: LOCALISED INFECTION
     Dosage: 750 ML   1 A DAY  PO
     Route: 048
     Dates: start: 20070912, end: 20070918

REACTIONS (13)
  - ABASIA [None]
  - CONVULSION [None]
  - DYSPNOEA [None]
  - FLUID INTAKE REDUCED [None]
  - HEADACHE [None]
  - INSOMNIA [None]
  - MALAISE [None]
  - MEMORY IMPAIRMENT [None]
  - MIGRAINE [None]
  - NO THERAPEUTIC RESPONSE [None]
  - ORAL INTAKE REDUCED [None]
  - TENDON DISORDER [None]
  - TENDON PAIN [None]
